FAERS Safety Report 5756312-2 (Version None)
Quarter: 2008Q2

REPORT INFORMATION
  Report Type: 
  Country: None (occurrence: None)
  Receive Date: 20080528
  Receipt Date: 20080528
  Transmission Date: 20081010
  Serious: Yes (Disabling)
  Sender: FDA-Public Use
  Company Number: None

PATIENT
  Age: 73 Year
  Sex: Female

DRUGS (9)
  1. CLOZAPINE [Suspect]
     Dosage: 150 MG QHS PO
     Route: 048
  2. ALBUTEROL [Concomitant]
  3. ASCORBIC ACID [Concomitant]
  4. BUDESONIDE [Concomitant]
  5. ENALAPRIL MALEATE [Concomitant]
  6. FERROUS SULFATE TAB [Concomitant]
  7. ISOPHANE INSULIN [Concomitant]
  8. METOPROLOL [Concomitant]
  9. M.V.I. [Concomitant]

REACTIONS (4)
  - LETHARGY [None]
  - MENTAL STATUS CHANGES [None]
  - TREATMENT NONCOMPLIANCE [None]
  - UNRESPONSIVE TO STIMULI [None]
